FAERS Safety Report 18741772 (Version 1)
Quarter: 2021Q1

REPORT INFORMATION
  Report Type: Spontaneous
  Country: US (occurrence: US)
  Receive Date: 20210114
  Receipt Date: 20210114
  Transmission Date: 20210419
  Serious: No
  Sender: FDA-Public Use
  Company Number: US-AERIE-2020-001826

PATIENT
  Age: 10 Year

DRUGS (1)
  1. RHOPRESSA [Suspect]
     Active Substance: NETARSUDIL MESYLATE
     Indication: UVEITIC GLAUCOMA
     Dosage: UNK, OD, QD
     Route: 047

REACTIONS (3)
  - Off label use [Unknown]
  - Conjunctival hyperaemia [Unknown]
  - Intraocular pressure increased [Unknown]
